FAERS Safety Report 7012163-2 (Version None)
Quarter: 2010Q3

REPORT INFORMATION
  Report Type: 
  Country: None (occurrence: None)
  Receive Date: 20100924
  Receipt Date: 20100908
  Transmission Date: 20110219
  Serious: No
  Sender: FDA-Public Use
  Company Number: US-B.I. PHARMACEUTICALS,INC./RIDGEFIELD-2010-BP-09552BP

PATIENT
  Sex: Male

DRUGS (3)
  1. SPIRIVA [Suspect]
     Indication: CHRONIC OBSTRUCTIVE PULMONARY DISEASE
     Dosage: 18 MCG
     Route: 055
     Dates: start: 20100601
  2. METOPROLOL TARTRATE [Concomitant]
  3. AMLODIPINE BESYLATE AND BENAZEPRIL HCL [Concomitant]

REACTIONS (6)
  - DYSPNOEA [None]
  - DYSURIA [None]
  - OROPHARYNGEAL PAIN [None]
  - PROSTATIC DISORDER [None]
  - SPUTUM INCREASED [None]
  - SWOLLEN TONGUE [None]
